FAERS Safety Report 15210291 (Version 2)
Quarter: 2018Q3

REPORT INFORMATION
  Report Type: Spontaneous
  Country: US (occurrence: PT)
  Receive Date: 20180727
  Receipt Date: 20180910
  Transmission Date: 20181010
  Serious: Yes (Hospitalization)
  Sender: FDA-Public Use
  Company Number: PHHY2018PT050889

PATIENT
  Age: 8 Year
  Sex: Female

DRUGS (1)
  1. AMOXICILLIN. [Suspect]
     Active Substance: AMOXICILLIN
     Indication: PHARYNGITIS BACTERIAL
     Dosage: 50 MG/KG, QD
     Route: 048

REACTIONS (11)
  - Odynophagia [Unknown]
  - Lymphadenopathy [Unknown]
  - Tonsillar exudate [Unknown]
  - Lymphocyte morphology abnormal [Unknown]
  - Malaise [Unknown]
  - Concomitant disease aggravated [Unknown]
  - Mononucleosis heterophile test positive [Unknown]
  - Musculoskeletal stiffness [Unknown]
  - Infectious mononucleosis [Unknown]
  - Lymphocytosis [Unknown]
  - Drug ineffective [Unknown]
